FAERS Safety Report 8795590 (Version 2)
Quarter: 2012Q4

REPORT INFORMATION
  Report Type: 
  Country: CA (occurrence: CA)
  Receive Date: 20120919
  Receipt Date: 20121116
  Transmission Date: 20130627
  Serious: Yes (Life-Threatening, Hospitalization)
  Sender: FDA-Public Use
  Company Number: CA-JNJFOC-20120907804

PATIENT
  Age: 77 Year
  Sex: Female
  Weight: 70 kg

DRUGS (5)
  1. XARELTO [Suspect]
     Indication: KNEE ARTHROPLASTY
     Route: 048
     Dates: start: 20120319, end: 20120331
  2. XARELTO [Suspect]
     Indication: THROMBOSIS PROPHYLAXIS
     Route: 048
     Dates: start: 20120319, end: 20120331
  3. METOPROLOL [Concomitant]
  4. HYDROMORPHONE [Concomitant]
     Dosage: 1-2 tablets p4h prn
     Route: 065
  5. LATANOPROST [Concomitant]
     Route: 047

REACTIONS (1)
  - Pulmonary embolism [Unknown]
